FAERS Safety Report 18183966 (Version 1)
Quarter: 2020Q3

REPORT INFORMATION
  Report Type: Spontaneous
  Country: FR (occurrence: FR)
  Receive Date: 20200823
  Receipt Date: 20200823
  Transmission Date: 20201103
  Serious: Yes (Other)
  Sender: FDA-Public Use
  Company Number: FR-SA-2020SA221886

PATIENT

DRUGS (3)
  1. ELOXATIN [Suspect]
     Active Substance: OXALIPLATIN
     Indication: RECTAL CANCER
     Dosage: 160 MG, QCY
     Route: 041
     Dates: start: 20200723, end: 20200723
  2. BEVACIZUMAB. [Suspect]
     Active Substance: BEVACIZUMAB
     Indication: RECTAL CANCER
     Dosage: 375 MG, QCY
     Route: 041
     Dates: start: 20200723, end: 20200723
  3. LEVOFOLINATE DE CALCIUM ZENTIVA [Suspect]
     Active Substance: LEVOLEUCOVORIN CALCIUM
     Indication: RECTAL CANCER
     Dosage: 330 MG, QCY
     Route: 041
     Dates: start: 20200723, end: 20200723

REACTIONS (1)
  - Anaphylactoid reaction [Recovered/Resolved]

NARRATIVE: CASE EVENT DATE: 20200723
